FAERS Safety Report 6926990-0 (Version None)
Quarter: 2010Q3

REPORT INFORMATION
  Report Type: 
  Country: None (occurrence: None)
  Receive Date: 20100816
  Receipt Date: 20100712
  Transmission Date: 20110219
  Serious: No
  Sender: FDA-Public Use
  Company Number: US-ABBOTT-10P-163-0657125-00

PATIENT
  Sex: Female
  Weight: 70.824 kg

DRUGS (4)
  1. SIMCOR [Suspect]
     Indication: BLOOD CHOLESTEROL INCREASED
     Dates: start: 20100501, end: 20100601
  2. SYNTHROID [Concomitant]
     Indication: HYPOTHYROIDISM
     Dates: start: 20100501
  3. TOPROL-XL [Concomitant]
     Indication: HYPERTENSION
  4. LOVAZA [Concomitant]
     Indication: BLOOD CHOLESTEROL INCREASED

REACTIONS (5)
  - ERYTHEMA [None]
  - PARAESTHESIA [None]
  - PRURITUS [None]
  - SKIN TIGHTNESS [None]
  - SWELLING [None]
